FAERS Safety Report 8915750 (Version 2)
Quarter: 2013Q1

REPORT INFORMATION
  Report Type: Spontaneous
  Country: US (occurrence: US)
  Receive Date: 20121119
  Receipt Date: 20130312
  Transmission Date: 20140127
  Serious: Yes (Other)
  Sender: FDA-Public Use
  Company Number: US-009507513-1211USA006481

PATIENT
  Sex: Male

DRUGS (2)
  1. ZOCOR [Suspect]
     Dosage: 40 MG, UNK
     Route: 048
     Dates: start: 1999, end: 20121111
  2. OXYBUTIN [Concomitant]

REACTIONS (6)
  - Prostate cancer [Not Recovered/Not Resolved]
  - Muscle spasms [Not Recovered/Not Resolved]
  - Pain in extremity [Not Recovered/Not Resolved]
  - Spinal disorder [Not Recovered/Not Resolved]
  - Salivary gland disorder [Not Recovered/Not Resolved]
  - Arthritis [Not Recovered/Not Resolved]
